FAERS Safety Report 9173269 (Version 1)
Quarter: 2013Q1

REPORT INFORMATION
  Report Type: Spontaneous
  Country: MY (occurrence: None)
  Receive Date: 20130313
  Receipt Date: 20130313
  Transmission Date: 20140127
  Serious: No
  Sender: FDA-Public Use
  Company Number: AEMYS201200509

PATIENT
  Age: 46 Year
  Sex: Female

DRUGS (9)
  1. ALBUTEIN [Suspect]
     Indication: PRODUCT USED FOR UNKNOWN INDICATION
     Route: 042
     Dates: start: 20110919, end: 20110919
  2. SPIRONOLACTONE [Concomitant]
  3. ATORVASTATIN [Concomitant]
  4. CALCITRIOL [Concomitant]
  5. PREDNISOLONE [Concomitant]
  6. FUROSEMIDE [Concomitant]
  7. HYDROCHLOROTHIAZIDE [Concomitant]
  8. POTASSIUM CHLORIDE [Concomitant]
  9. OMEPRAZOLE [Concomitant]

REACTIONS (1)
  - Flushing [None]
